FAERS Safety Report 18202923 (Version 1)
Quarter: 2020Q3

REPORT INFORMATION
  Report Type: Spontaneous
  Country: CN (occurrence: CN)
  Receive Date: 20200827
  Receipt Date: 20200827
  Transmission Date: 20201103
  Serious: Yes (Hospitalization, Other)
  Sender: FDA-Public Use
  Company Number: CN-PFIZER INC-2020326428

PATIENT
  Age: 34 Year
  Sex: Male
  Weight: 62 kg

DRUGS (6)
  1. METHOTREXATE. [Suspect]
     Active Substance: METHOTREXATE
     Indication: ACUTE MYELOID LEUKAEMIA
     Dosage: 25 MG, 1X/DAY
     Route: 041
     Dates: start: 20200730, end: 20200730
  2. METHOTREXATE. [Suspect]
     Active Substance: METHOTREXATE
     Dosage: 17 MG, 1X/DAY
     Route: 041
     Dates: start: 20200804, end: 20200804
  3. METHOTREXATE. [Suspect]
     Active Substance: METHOTREXATE
     Dosage: 17 MG, 1X/DAY
     Route: 041
     Dates: start: 20200801, end: 20200801
  4. SODIUM CHLORIDE. [Concomitant]
     Active Substance: SODIUM CHLORIDE
     Indication: ACUTE MYELOID LEUKAEMIA
     Dosage: 250 ML, 1X/DAY
     Route: 041
     Dates: start: 20200730, end: 20200730
  5. SODIUM CHLORIDE. [Concomitant]
     Active Substance: SODIUM CHLORIDE
     Dosage: 250 ML, 1X/DAY
     Route: 041
     Dates: start: 20200804, end: 20200804
  6. SODIUM CHLORIDE. [Concomitant]
     Active Substance: SODIUM CHLORIDE
     Dosage: 250 ML, 1X/DAY
     Route: 041
     Dates: start: 20200801, end: 20200801

REACTIONS (2)
  - Granulocyte count decreased [Recovering/Resolving]
  - White blood cell count decreased [Recovering/Resolving]

NARRATIVE: CASE EVENT DATE: 20200731
